FAERS Safety Report 16074109 (Version 1)
Quarter: 2019Q1

REPORT INFORMATION
  Report Type: Report from Study
  Country: ZA (occurrence: ZA)
  Receive Date: 20190314
  Receipt Date: 20190314
  Transmission Date: 20190418
  Serious: Yes (Other)
  Sender: FDA-Public Use
  Company Number: ZA-SA-2019SA067077

PATIENT
  Age: 76 Year
  Sex: Male

DRUGS (2)
  1. INSULIN GLARGINE [Suspect]
     Active Substance: INSULIN GLARGINE
     Dosage: UNK
  2. OPTISULIN [INSULIN GLARGINE] [Concomitant]
     Active Substance: INSULIN GLARGINE
     Dosage: 8U, BT
     Dates: start: 20190220

REACTIONS (3)
  - Glycosylated haemoglobin increased [Unknown]
  - Loss of consciousness [Recovered/Resolved]
  - Blood glucose decreased [Recovered/Resolved]

NARRATIVE: CASE EVENT DATE: 20181212
